FAERS Safety Report 14306773 (Version 2)
Quarter: 2017Q4

REPORT INFORMATION
  Report Type: Spontaneous
  Country: US (occurrence: US)
  Receive Date: 20171220
  Receipt Date: 20171226
  Transmission Date: 20180321
  Serious: No
  Sender: FDA-Public Use
  Company Number: US-B.I. PHARMACEUTICALS,INC./RIDGEFIELD-2017-BI-066668

PATIENT
  Sex: Male

DRUGS (12)
  1. SYMBICORT [Concomitant]
     Active Substance: BUDESONIDE\FORMOTEROL FUMARATE DIHYDRATE
     Indication: CHRONIC OBSTRUCTIVE PULMONARY DISEASE
     Dosage: BID;  FORM STRENGTH: 160/4.5MCG; FORMULATION: INHALATION SPRAY
     Dates: start: 201509
  2. LISINOPRIL. [Concomitant]
     Active Substance: LISINOPRIL
     Indication: HYPERTENSION
     Dosage: ONCE DAILY;  FORM STRENGTH: 10MG; FORMULATION: TABLET
     Route: 048
     Dates: start: 2007
  3. DILTIAZEM. [Concomitant]
     Active Substance: DILTIAZEM
     Indication: HYPERTENSION
     Dosage: ONCE DAILY;  FORM STRENGTH: 360MG; FORMULATION: TABLET
     Route: 048
     Dates: start: 201509
  4. LOVASTATIN. [Concomitant]
     Active Substance: LOVASTATIN
     Indication: BLOOD CHOLESTEROL INCREASED
     Dosage: ONCE DAILY;  FORM STRENGTH: 40MG; FORMULATION: TABLET
     Route: 048
     Dates: start: 2007
  5. SPIRIVA [Suspect]
     Active Substance: TIOTROPIUM BROMIDE MONOHYDRATE
     Indication: CHRONIC OBSTRUCTIVE PULMONARY DISEASE
     Route: 048
     Dates: start: 201509
  6. PROAIR 90MCG [Concomitant]
     Indication: CHRONIC OBSTRUCTIVE PULMONARY DISEASE
     Dosage: PRN;  FORM STRENGTH: 90MCG; FORMULATION: INHALATION AEROSOL
     Route: 055
     Dates: start: 201509
  7. METOPROLOL. [Concomitant]
     Active Substance: METOPROLOL
     Indication: HEART RATE INCREASED
     Dosage: BID;  FORM STRENGTH: 50MG; FORMULATION: TABLET
     Route: 048
     Dates: start: 201509
  8. MULTIVITAMIN 50+ [Concomitant]
     Indication: SUPPLEMENTATION THERAPY
     Dosage: ONCE DAILY;  FORMULATION: CAPSULE;
     Route: 048
  9. XARELTO [Concomitant]
     Active Substance: RIVAROXABAN
     Indication: ANTIPLATELET THERAPY
     Dosage: ONCE DAILY;  FORM STRENGTH: 20MG; FORMULATION: TABLET
     Route: 048
     Dates: start: 201509
  10. IRON PILL [Concomitant]
     Active Substance: IRON
     Indication: SUPPLEMENTATION THERAPY
     Dosage: ONCE DAILY;  FORMULATION: TABLET;
     Route: 048
  11. LANSOPRAZOLE. [Concomitant]
     Active Substance: LANSOPRAZOLE
     Indication: GASTROOESOPHAGEAL REFLUX DISEASE
     Dosage: ONCE DAILY;  FORM STRENGTH: 30MG; FORMULATION: CAPSULE
     Route: 048
     Dates: start: 1991
  12. VITAMIN C [Concomitant]
     Active Substance: ASCORBIC ACID
     Indication: SUPPLEMENTATION THERAPY
     Dosage: ONCE DAILY;  FORMULATION: TABLET;
     Route: 048

REACTIONS (3)
  - Drug ineffective [Unknown]
  - Product quality issue [Unknown]
  - Incorrect dosage administered [Unknown]
